FAERS Safety Report 10381435 (Version 1)
Quarter: 2014Q1

REPORT INFORMATION
  Report Type: Spontaneous
  Country: PR (occurrence: None)
  Receive Date: 20140306
  Receipt Date: 20140306
  Transmission Date: 20141002
  Serious: Yes (Hospitalization, Other)
  Sender: FDA-Public Use
  Company Number: 163-21880-13013954

PATIENT
  Age: 45 Year
  Sex: Male

DRUGS (1)
  1. REVLIMID (LENALIDOMIDE) (10 MILLIGRAM, CAPSULES) [Suspect]
     Indication: MYELOFIBROSIS
     Dosage: 21 IN 21 D
     Route: 048
     Dates: start: 20111026

REACTIONS (3)
  - Hypersensitivity [None]
  - Erythema [None]
  - Oedema peripheral [None]
